FAERS Safety Report 5273838-9 (Version None)
Quarter: 2007Q1

REPORT INFORMATION
  Report Type: 
  Country: None (occurrence: None)
  Receive Date: 20070323
  Receipt Date: 20070309
  Transmission Date: 20070707
  Serious: Yes (Other)
  Sender: FDA-Public Use
  Company Number: GBWYE498402FEB07

PATIENT
  Sex: Male
  Weight: 89 kg

DRUGS (9)
  1. ENBREL [Suspect]
     Indication: ANKYLOSING SPONDYLITIS
     Route: 058
     Dates: start: 20050901, end: 20070123
  2. PROPRANOLOL [Concomitant]
     Route: 048
  3. FEXOFENADINE [Concomitant]
     Route: 048
  4. ATORVASTATIN CALCIUM [Concomitant]
     Dosage: UNKNOWN
  5. PREDNISOLONE [Concomitant]
     Route: 048
  6. CO-CODAMOL [Concomitant]
     Dosage: 1-2 TIMES PER DAY, AS NEEDED
     Route: 048
  7. DICLOFENAC SODIUM [Concomitant]
     Dosage: 75MG AS NEEDED
     Route: 048
  8. CANDESARTAN [Concomitant]
     Route: 048
  9. LANSOPRAZOLE [Concomitant]
     Route: 048

REACTIONS (2)
  - CONDITION AGGRAVATED [None]
  - UVEITIS [None]
